FAERS Safety Report 7482363-6 (Version None)
Quarter: 2011Q2

REPORT INFORMATION
  Report Type: 
  Country: None (occurrence: None)
  Receive Date: 20110516
  Receipt Date: 20110512
  Transmission Date: 20111010
  Serious: Yes (Hospitalization)
  Sender: FDA-Public Use
  Company Number: ES-PFIZER INC-2011102763

PATIENT
  Age: 67 Year
  Sex: Male

DRUGS (2)
  1. FUROSEMIDE [Interacting]
     Indication: HEPATIC CIRRHOSIS
     Dosage: UNK
     Route: 048
     Dates: start: 20080715, end: 20080923
  2. ALDACTONE [Suspect]
     Indication: HEPATIC CIRRHOSIS
     Dosage: 25 MG, UNK
     Route: 048
     Dates: start: 20080715, end: 20080923

REACTIONS (5)
  - HYPERKALAEMIA [None]
  - DRUG INTERACTION [None]
  - RENAL FAILURE ACUTE [None]
  - MALAISE [None]
  - DISORIENTATION [None]
